FAERS Safety Report 9197665 (Version 1)
Quarter: 2013Q1

REPORT INFORMATION
  Report Type: Spontaneous
  Country: US (occurrence: US)
  Receive Date: 20130328
  Receipt Date: 20130328
  Transmission Date: 20140127
  Serious: Yes (Hospitalization)
  Sender: FDA-Public Use
  Company Number: US-BAYER-2013-035475

PATIENT
  Age: 46 Year
  Sex: Female

DRUGS (9)
  1. YAZ [Suspect]
  2. YASMIN [Suspect]
     Indication: MENSTRUAL CYCLE MANAGEMENT
  3. YASMIN [Suspect]
     Indication: CONTRACEPTION
  4. OCELLA [Suspect]
  5. HYDROCODONE W/ACETAMINOPHEN [Concomitant]
  6. FLUCONAZOLE [Concomitant]
  7. VITAMIN D [Concomitant]
  8. IBUPROFEN [Concomitant]
  9. ACETAMINOPHEN [Concomitant]

REACTIONS (2)
  - Deep vein thrombosis [None]
  - Pulmonary embolism [None]
